FAERS Safety Report 5177516-6 (Version None)
Quarter: 2006Q4

REPORT INFORMATION
  Report Type: 
  Country: None (occurrence: None)
  Receive Date: 20061218
  Receipt Date: 20060731
  Transmission Date: 20070319
  Serious: No
  Sender: FDA-Public Use
  Company Number: US-AMGEN-KDL188557

PATIENT
  Sex: Female
  Weight: 77.2 kg

DRUGS (6)
  1. ENBREL [Suspect]
     Indication: PSORIATIC ARTHROPATHY
     Route: 058
     Dates: start: 20051223, end: 20060925
  2. ENBREL [Suspect]
     Indication: PSORIASIS
     Dates: start: 20051223, end: 20060925
  3. PRILOSEC [Concomitant]
  4. ZELNORM [Concomitant]
     Dates: start: 20060901
  5. WELLBUTRIN [Concomitant]
     Dates: start: 20050101
  6. AMBIEN [Concomitant]
     Dates: start: 20060901, end: 20061015

REACTIONS (2)
  - BACK PAIN [None]
  - HEADACHE [None]
